FAERS Safety Report 9966418 (Version 2)
Quarter: 2014Q1

REPORT INFORMATION
  Report Type: Report from Study
  Country: US (occurrence: US)
  Receive Date: 20140305
  Receipt Date: 20140305
  Transmission Date: 20141002
  Serious: No
  Sender: FDA-Public Use
  Company Number: US-ABBVIE-13P-163-1106607-00

PATIENT
  Age: 48 Year
  Sex: Female
  Weight: 105.33 kg

DRUGS (19)
  1. HUMIRA [Suspect]
     Indication: PSORIASIS
     Dosage: INITIAL DOSE
     Dates: start: 20130610, end: 20130610
  2. HUMIRA [Suspect]
     Indication: RHEUMATOID ARTHRITIS
  3. HUMIRA [Suspect]
     Indication: PSORIATIC ARTHROPATHY
  4. HUMIRA [Suspect]
     Indication: PSORIASIS
     Dates: start: 20130610
  5. ZOLOFT [Concomitant]
     Indication: DEPRESSION
  6. HYDROCODONE [Concomitant]
     Indication: ARTHRALGIA
     Dosage: 10/325MG
     Route: 048
  7. CARISOPRODOL [Concomitant]
     Indication: ARTHRALGIA
     Route: 048
  8. CARISOPRODOL [Concomitant]
     Indication: MUSCLE SPASMS
  9. LISINOPRIL [Concomitant]
     Indication: HYPERTENSION
     Route: 048
  10. ALPRAZOLAM [Concomitant]
     Indication: PRURITUS
     Route: 048
  11. ALPRAZOLAM [Concomitant]
     Indication: AGITATION
  12. ALPRAZOLAM [Concomitant]
     Indication: ANXIETY
  13. HYDROXYZINE HCL [Concomitant]
     Indication: PRURITUS
     Route: 048
  14. BENADRYL [Concomitant]
     Indication: PRURITUS
  15. OMEPRAZOLE [Concomitant]
     Indication: GASTROOESOPHAGEAL REFLUX DISEASE
     Route: 048
  16. MECLIZINE [Concomitant]
     Indication: NAUSEA
     Route: 048
  17. MECLIZINE [Concomitant]
     Indication: DIZZINESS
  18. SERTRALINE [Concomitant]
     Indication: DEPRESSION
     Route: 048
  19. TYLENOL PM [Concomitant]
     Indication: INSOMNIA
     Dosage: AT BEDTIME
     Route: 048

REACTIONS (11)
  - Device malfunction [Not Recovered/Not Resolved]
  - Psoriasis [Not Recovered/Not Resolved]
  - Injection site pain [Unknown]
  - Pruritus [Not Recovered/Not Resolved]
  - Psoriasis [Not Recovered/Not Resolved]
  - Injection site pain [Not Recovered/Not Resolved]
  - Tongue disorder [Not Recovered/Not Resolved]
  - Asthenia [Not Recovered/Not Resolved]
  - Nausea [Not Recovered/Not Resolved]
  - Decreased appetite [Not Recovered/Not Resolved]
  - Incorrect dose administered [Not Recovered/Not Resolved]
